FAERS Safety Report 6892587-4 (Version None)
Quarter: 2010Q3

REPORT INFORMATION
  Report Type: 
  Country: None (occurrence: None)
  Receive Date: 20100731
  Receipt Date: 20080714
  Transmission Date: 20110219
  Serious: No
  Sender: FDA-Public Use
  Company Number: US-PFIZER INC-2008058567

PATIENT
  Age: 73 Year
  Sex: Male
  Weight: 108.86 kg

DRUGS (3)
  1. AMLODIPINE [Suspect]
     Indication: HYPERTENSION
     Route: 048
     Dates: start: 20080301
  2. ATENOLOL [Suspect]
     Indication: HYPERTENSION
     Route: 048
     Dates: start: 20050101
  3. LEVOTHROID [Concomitant]
     Dosage: 75 MCG 1/2 TABLET DAILY

REACTIONS (2)
  - BLOOD PRESSURE SYSTOLIC DECREASED [None]
  - EYE HAEMORRHAGE [None]
